FAERS Safety Report 8491990-9 (Version None)
Quarter: 2012Q3

REPORT INFORMATION
  Report Type: 
  Country: None (occurrence: None)
  Receive Date: 20120706
  Receipt Date: 20120702
  Transmission Date: 20120928
  Serious: Yes (Hospitalization, Other)
  Sender: FDA-Public Use
  Company Number: PHEH2012US012130

PATIENT
  Sex: Female

DRUGS (9)
  1. METFORMIN HCL [Concomitant]
     Indication: DIABETES MELLITUS
     Dosage: 500 MG, UNK
     Route: 048
  2. DENOSUMAB [Concomitant]
  3. RANITIDINE [Concomitant]
     Indication: ABDOMINAL DISCOMFORT
     Dosage: 150 MG, BID
  4. FEMARA [Concomitant]
     Indication: BLOOD OESTROGEN DECREASED
     Dosage: 2.5 MG, DAILY
     Route: 048
  5. ENALAPRIL/HCT [Concomitant]
     Indication: BLOOD PRESSURE
     Dosage: 1.5 DF, DAILY
     Route: 048
  6. AFINITOR [Suspect]
     Indication: BREAST CANCER METASTATIC
     Dosage: 10 MG, DAILY
     Route: 048
     Dates: start: 20120419, end: 20120611
  7. EXEMESTANE [Concomitant]
     Indication: BLOOD OESTROGEN DECREASED
     Dosage: 25 MG, DAILY
     Route: 048
  8. LOVASTATIN [Concomitant]
     Indication: BLOOD CHOLESTEROL ABNORMAL
     Dosage: 40 MG, DAILY
     Route: 048
  9. ALPRAZOLAM [Concomitant]
     Indication: ANXIETY
     Dosage: 25 MG, UNK
     Route: 048

REACTIONS (15)
  - ANAEMIA [None]
  - KETOACIDOSIS [None]
  - DIABETES MELLITUS [None]
  - DECREASED APPETITE [None]
  - PNEUMONITIS [None]
  - DYSPNOEA [None]
  - RENAL IMPAIRMENT [None]
  - PAIN [None]
  - AGEUSIA [None]
  - HEADACHE [None]
  - FATIGUE [None]
  - DRY MOUTH [None]
  - POLYDIPSIA [None]
  - NAUSEA [None]
  - WEIGHT DECREASED [None]
